FAERS Safety Report 16137962 (Version 1)
Quarter: 2019Q1

REPORT INFORMATION
  Report Type: Report from Study
  Country: None (occurrence: BR)
  Receive Date: 20190330
  Receipt Date: 20190330
  Transmission Date: 20190418
  Serious: Yes (Other)
  Sender: FDA-Public Use
  Company Number: BR-ABBVIE-19K-020-2673242-00

PATIENT
  Sex: Female

DRUGS (1)
  1. HUMIRA [Suspect]
     Active Substance: ADALIMUMAB
     Indication: RHEUMATOID ARTHRITIS
     Route: 058
     Dates: start: 20140101, end: 20190215

REACTIONS (6)
  - Knee deformity [Unknown]
  - Cartilage injury [Unknown]
  - Ligament sprain [Unknown]
  - Knee arthroplasty [Unknown]
  - Gait disturbance [Unknown]
  - Bedridden [Unknown]
